FAERS Safety Report 6049466-4 (Version None)
Quarter: 2009Q1

REPORT INFORMATION
  Report Type: 
  Country: None (occurrence: None)
  Receive Date: 20090116
  Receipt Date: 20081231
  Transmission Date: 20090719
  Serious: Yes (Hospitalization)
  Sender: FDA-Public Use
  Company Number: 8039280

PATIENT
  Age: 20 Year
  Sex: Male

DRUGS (3)
  1. KEPPRA [Suspect]
     Indication: EPILEPSY
     Dosage: 1000 MG 2/D PO
     Route: 048
     Dates: start: 20050101
  2. TEGRETOL [Concomitant]
  3. TOPIRAMATE [Concomitant]

REACTIONS (8)
  - AGGRESSION [None]
  - COMMUNICATION DISORDER [None]
  - HEAD INJURY [None]
  - HYDROCEPHALUS [None]
  - HYPONATRAEMIA [None]
  - SLEEP DISORDER [None]
  - TREATMENT NONCOMPLIANCE [None]
  - WHITE BLOOD CELL COUNT DECREASED [None]
